FAERS Safety Report 21764759 (Version 1)
Quarter: 2022Q4

REPORT INFORMATION
  Report Type: Spontaneous
  Country: US (occurrence: US)
  Receive Date: 20221222
  Receipt Date: 20221222
  Transmission Date: 20230113
  Serious: No
  Sender: FDA-Public Use
  Company Number: US-ELI_LILLY_AND_COMPANY-US202212005425

PATIENT
  Age: 51 Year
  Sex: Female

DRUGS (2)
  1. MOUNJARO [Suspect]
     Active Substance: TIRZEPATIDE
     Indication: Weight decreased
     Dosage: UNK UNK, UNKNOWN
     Route: 065
  2. EPHEDRINE [Suspect]
     Active Substance: EPHEDRINE
     Indication: Product used for unknown indication
     Dosage: UNK UNK, UNKNOWN
     Route: 065

REACTIONS (7)
  - Poor peripheral circulation [Unknown]
  - Neuralgia [Unknown]
  - Muscle spasms [Unknown]
  - Arthritis [Unknown]
  - Off label use [Unknown]
  - Abdominal pain upper [Unknown]
  - Vomiting [Unknown]
